FAERS Safety Report 6694072-1 (Version None)
Quarter: 2010Q2

REPORT INFORMATION
  Report Type: 
  Country: None (occurrence: None)
  Receive Date: 20100423
  Receipt Date: 20100409
  Transmission Date: 20101027
  Serious: Yes (Hospitalization, Other)
  Sender: FDA-Public Use
  Company Number: US-ELI_LILLY_AND_COMPANY-US201004002961

PATIENT
  Age: 66 Year
  Sex: Female

DRUGS (13)
  1. FORTEO [Suspect]
     Indication: OSTEOPOROSIS
     Dosage: 1 D/F, UNK
  2. CHEMOTHERAPEUTICS NOS [Concomitant]
  3. ZOCOR [Concomitant]
     Dosage: 80 MG, UNK
  4. LEXAPRO [Concomitant]
     Dosage: 20 MG, DAILY (1/D)
  5. LYRICA [Concomitant]
     Dosage: 225 MG, DAILY (1/D)
  6. DIOVAN [Concomitant]
     Dosage: 80 MG, DAILY (1/D)
  7. SYNTHROID [Concomitant]
     Dosage: 75 UG, DAILY (1/D)
  8. PLAVIX [Concomitant]
     Dosage: 75 MG, UNK
  9. LASIX [Concomitant]
     Dosage: 40 MG, DAILY (1/D)
  10. XANAX [Concomitant]
     Dosage: 0.25 MG, 3/D
  11. CARDIZEM CD [Concomitant]
     Dosage: 120 MG, DAILY (1/D)
  12. PROTONIX [Concomitant]
     Dosage: 14 MG, DAILY (1/D)
  13. ASPIRIN [Concomitant]
     Dosage: 162 MG, UNK

REACTIONS (1)
  - RHABDOMYOLYSIS [None]
